FAERS Safety Report 9443041 (Version 1)
Quarter: 2013Q3

REPORT INFORMATION
  Report Type: Spontaneous
  Country: US (occurrence: US)
  Receive Date: 20130806
  Receipt Date: 20130806
  Transmission Date: 20140515
  Serious: Yes (Hospitalization)
  Sender: FDA-Public Use
  Company Number: US-B.I. PHARMACEUTICALS,INC./RIDGEFIELD-2013-BI-22895BP

PATIENT
  Age: 69 Year
  Sex: Female
  Weight: 58 kg

DRUGS (3)
  1. SPIRIVA [Suspect]
     Indication: CHRONIC OBSTRUCTIVE PULMONARY DISEASE
     Dosage: 18 MCG
     Route: 055
     Dates: start: 2011
  2. TOBRAMYCIN [Concomitant]
     Indication: PSEUDOMONAS INFECTION
     Route: 055
  3. PREDNISONE [Concomitant]
     Indication: ASTHMA

REACTIONS (4)
  - Pulmonary congestion [Recovered/Resolved]
  - Mycobacterial infection [Unknown]
  - Cardiac failure congestive [Unknown]
  - Dyspnoea [Recovered/Resolved]
